FAERS Safety Report 9386079 (Version 1)
Quarter: 2013Q3

REPORT INFORMATION
  Report Type: Spontaneous
  Country: FR (occurrence: FR)
  Receive Date: 20130706
  Receipt Date: 20130706
  Transmission Date: 20140515
  Serious: Yes (Other)
  Sender: FDA-Public Use
  Company Number: FR-B.I. PHARMACEUTICALS,INC./RIDGEFIELD-2013-FF-01802FF

PATIENT
  Age: 90 Year
  Sex: Female

DRUGS (7)
  1. MECIR [Suspect]
     Dosage: 0.4 MG
     Route: 048
     Dates: start: 20130125, end: 20130610
  2. MESTINON [Suspect]
     Dosage: 180 MG
     Route: 048
     Dates: start: 20130123, end: 20130614
  3. LASILIX [Suspect]
     Dosage: 40 MG
     Route: 048
  4. CALCIDOSE VITAMINE D [Suspect]
     Route: 048
  5. TRANSIPEG [Suspect]
     Route: 048
  6. KETOCONAZOLE [Suspect]
     Route: 061
     Dates: start: 20130513
  7. DOLIPRANE [Suspect]
     Dosage: 3000 MG
     Route: 048

REACTIONS (1)
  - Hallucination [Not Recovered/Not Resolved]
